FAERS Safety Report 18968967 (Version 1)
Quarter: 2021Q1

REPORT INFORMATION
  Report Type: Spontaneous
  Country: US (occurrence: US)
  Receive Date: 20210304
  Receipt Date: 20210304
  Transmission Date: 20210420
  Serious: Yes (Other)
  Sender: FDA-Public Use
  Company Number: US-PFIZER INC-2020072642

PATIENT
  Age: 49 Year
  Sex: Female

DRUGS (2)
  1. LYRICA [Suspect]
     Active Substance: PREGABALIN
     Dosage: 200 MG, 3X/DAY (270 CAPSULE)
     Route: 048
  2. LYRICA [Suspect]
     Active Substance: PREGABALIN
     Indication: PARAESTHESIA
     Dosage: 225 MG, 2X/DAY
     Route: 048

REACTIONS (5)
  - Type 2 diabetes mellitus [Unknown]
  - Major depression [Unknown]
  - Pain [Unknown]
  - Bipolar disorder [Unknown]
  - Chronic left ventricular failure [Unknown]
